FAERS Safety Report 24077039 (Version 1)
Quarter: 2024Q3

REPORT INFORMATION
  Report Type: Spontaneous
  Country: IT (occurrence: IT)
  Receive Date: 20240711
  Receipt Date: 20240711
  Transmission Date: 20241017
  Serious: Yes (Hospitalization, Other)
  Sender: AUROBINDO
  Company Number: IT-AUROBINDO-AUR-APL-2024-033622

PATIENT
  Age: 3 Month

DRUGS (4)
  1. AMOXICILLIN\CLAVULANIC ACID [Suspect]
     Active Substance: AMOXICILLIN\CLAVULANIC ACID
     Indication: Cellulitis staphylococcal
     Dosage: UNK
     Route: 065
  2. MEROPENEM [Suspect]
     Active Substance: MEROPENEM
     Indication: Cellulitis staphylococcal
     Dosage: 60 MILLIGRAM/KILOGRAM, ONCE A DAY
     Route: 065
  3. DAPTOMYCIN [Suspect]
     Active Substance: DAPTOMYCIN
     Indication: Cellulitis staphylococcal
     Dosage: 10 MILLIGRAM/KILOGRAM, ONCE A DAY
     Route: 065
  4. MENINGOCOCCAL GROUP B VACCINE [Concomitant]
     Active Substance: MENINGOCOCCAL GROUP B VACCINE
     Indication: Product used for unknown indication
     Dosage: 12 DAYS EARLIER
     Route: 065

REACTIONS (1)
  - Drug ineffective [Unknown]
